FAERS Safety Report 10760905 (Version 1)
Quarter: 2015Q1

REPORT INFORMATION
  Report Type: Spontaneous
  Country: GB (occurrence: None)
  Receive Date: 20150202
  Receipt Date: 20150202
  Transmission Date: 20150721
  Serious: Yes (Hospitalization, Other)
  Sender: FDA-Public Use
  Company Number: 20150118

PATIENT
  Age: 76 Year
  Sex: Female

DRUGS (1)
  1. METOJECT (METHOTREXATE DISODIUM) [Suspect]
     Active Substance: METHOTREXATE SODIUM
     Dosage: 7.5 MILLIGRAM IN 1 WEEK
     Route: 058

REACTIONS (5)
  - Lethargy [None]
  - Hypotonia [None]
  - Fall [None]
  - Hip fracture [None]
  - Somnolence [None]

NARRATIVE: CASE EVENT DATE: 20150109
